FAERS Safety Report 8624043-7 (Version None)
Quarter: 2012Q3

REPORT INFORMATION
  Report Type: 
  Country: None (occurrence: None)
  Receive Date: 20120827
  Receipt Date: 20120820
  Transmission Date: 20120928
  Serious: Yes (Hospitalization)
  Sender: FDA-Public Use
  Company Number: FR-GE HEALTHCARE MEDICAL DIAGNOSTICS-VISP-NO-1208S-0344

PATIENT
  Sex: Female

DRUGS (2)
  1. VISIPAQUE [Suspect]
     Indication: VARICOCELE OVARIAN
     Route: 042
     Dates: start: 20120606, end: 20120606
  2. AETOXISCLEROL 3% [Suspect]

REACTIONS (6)
  - SYNCOPE [None]
  - MICTURITION URGENCY [None]
  - DYSPNOEA [None]
  - SPEECH DISORDER [None]
  - PELVIC PAIN [None]
  - LOSS OF CONSCIOUSNESS [None]
